FAERS Safety Report 22947532 (Version 3)
Quarter: 2023Q4

REPORT INFORMATION
  Report Type: Spontaneous
  Country: TR (occurrence: TR)
  Receive Date: 20230915
  Receipt Date: 20231003
  Transmission Date: 20240109
  Serious: No
  Sender: FDA-Public Use
  Company Number: TR-PFIZER INC-202300286761

PATIENT

DRUGS (1)
  1. ENBREL [Suspect]
     Active Substance: ETANERCEPT
     Indication: Rheumatoid arthritis
     Dosage: UNK

REACTIONS (4)
  - Drug ineffective [Unknown]
  - Needle issue [Unknown]
  - Device defective [Unknown]
  - Arthropathy [Unknown]
